FAERS Safety Report 25749120 (Version 6)
Quarter: 2025Q4

REPORT INFORMATION
  Report Type: Report from Study
  Country: IL (occurrence: IL)
  Receive Date: 20250902
  Receipt Date: 20251111
  Transmission Date: 20260118
  Serious: Yes (Hospitalization)
  Sender: ABBVIE
  Company Number: IL-JNJFOC-20250829069

PATIENT
  Age: 58 Year
  Sex: Female
  Weight: 53 kg

DRUGS (20)
  1. IBRUTINIB [Suspect]
     Active Substance: IBRUTINIB
     Indication: Chronic lymphocytic leukaemia
     Route: 048
     Dates: start: 20250522, end: 20250618
  2. IBRUTINIB [Suspect]
     Active Substance: IBRUTINIB
     Indication: Chronic lymphocytic leukaemia
     Route: 048
     Dates: start: 20250717, end: 20250825
  3. IBRUTINIB [Suspect]
     Active Substance: IBRUTINIB
     Indication: Chronic lymphocytic leukaemia
     Route: 048
     Dates: start: 20250619, end: 20250716
  4. IBRUTINIB [Suspect]
     Active Substance: IBRUTINIB
     Indication: Chronic lymphocytic leukaemia
     Route: 048
     Dates: start: 20250826, end: 20250909
  5. IBRUTINIB [Suspect]
     Active Substance: IBRUTINIB
     Indication: Chronic lymphocytic leukaemia
     Route: 048
     Dates: start: 20250909
  6. FEBUXOSTAT [Concomitant]
     Active Substance: FEBUXOSTAT
     Indication: Prophylaxis
     Route: 048
  7. TROPICAMIDE [Concomitant]
     Active Substance: TROPICAMIDE
     Indication: Product used for unknown indication
     Dosage: TIME INTERVAL: 1 TOTAL: PATIENT ROA-TOPICAL
     Dates: start: 20250909, end: 20250909
  8. PHENYLEPHRINE HYDROCHLORIDE [Concomitant]
     Active Substance: PHENYLEPHRINE HYDROCHLORIDE
     Indication: Product used for unknown indication
     Dosage: TIME INTERVAL: 1 TOTAL: PATIENT ROA-TOPICAL
     Dates: start: 20250909, end: 20250909
  9. CITALOPRAM HYDROBROMIDE [Concomitant]
     Active Substance: CITALOPRAM HYDROBROMIDE
     Indication: Product used for unknown indication
     Dosage: DAILY
     Route: 048
     Dates: start: 20250829
  10. VENETOCLAX [Suspect]
     Active Substance: VENETOCLAX
     Indication: Product used for unknown indication
     Route: 048
     Dates: start: 20250908, end: 20250914
  11. VENETOCLAX [Suspect]
     Active Substance: VENETOCLAX
     Indication: Product used for unknown indication
     Route: 048
     Dates: start: 20250923, end: 20250925
  12. VENETOCLAX [Suspect]
     Active Substance: VENETOCLAX
     Indication: Product used for unknown indication
     Route: 048
     Dates: start: 20250901, end: 20250907
  13. VENETOCLAX [Suspect]
     Active Substance: VENETOCLAX
     Indication: Product used for unknown indication
     Route: 048
     Dates: start: 20250826, end: 20250831
  14. VENETOCLAX [Suspect]
     Active Substance: VENETOCLAX
     Indication: Product used for unknown indication
     Route: 048
     Dates: start: 20251005
  15. VENETOCLAX [Suspect]
     Active Substance: VENETOCLAX
     Indication: Product used for unknown indication
     Route: 048
     Dates: start: 20250915, end: 20250922
  16. VENETOCLAX [Suspect]
     Active Substance: VENETOCLAX
     Indication: Product used for unknown indication
     Route: 048
     Dates: start: 20250926, end: 20251004
  17. VITAMIN D [Concomitant]
     Active Substance: VITAMIN D NOS
     Indication: Product used for unknown indication
     Dosage: DROPS
     Route: 048
     Dates: start: 20250822
  18. FLUCYTOSINE [Concomitant]
     Active Substance: FLUCYTOSINE
     Indication: Non-cardiac chest pain
     Dosage: FOUR TIMES DAILY
     Route: 048
     Dates: start: 20250910, end: 20250915
  19. FLUCYTOSINE [Concomitant]
     Active Substance: FLUCYTOSINE
     Indication: Non-cardiac chest pain
     Dosage: TIME INTERVAL: 1 TOTAL: ONCE
     Route: 048
     Dates: start: 20250916, end: 20250916
  20. FLUCYTOSINE [Concomitant]
     Active Substance: FLUCYTOSINE
     Indication: Non-cardiac chest pain
     Route: 048
     Dates: start: 20250916, end: 20250916

REACTIONS (4)
  - Non-cardiac chest pain [Recovered/Resolved]
  - Cryptococcosis [Recovered/Resolved]
  - Cellulitis [Recovered/Resolved]
  - Urinary tract infection [Recovered/Resolved]

NARRATIVE: CASE EVENT DATE: 20250814
